FAERS Safety Report 6982141-8 (Version None)
Quarter: 2010Q3

REPORT INFORMATION
  Report Type: 
  Country: None (occurrence: None)
  Receive Date: 20100914
  Receipt Date: 20091210
  Transmission Date: 20110219
  Serious: No
  Sender: FDA-Public Use
  Company Number: US-PFIZER INC-2009285800

PATIENT
  Sex: Female
  Weight: 45.4 kg

DRUGS (2)
  1. LYRICA [Suspect]
     Indication: FIBROMYALGIA
     Dosage: 75 MG, 2X/DAY
     Route: 048
     Dates: start: 20091005, end: 20091017
  2. CYMBALTA [Concomitant]
     Indication: FIBROMYALGIA
     Dosage: 60 MG, 1X/DAY
     Route: 048
     Dates: start: 20060101

REACTIONS (8)
  - ANORGASMIA [None]
  - ARTHRALGIA [None]
  - FEELING ABNORMAL [None]
  - FEELING DRUNK [None]
  - HYPOAESTHESIA [None]
  - MENOPAUSE [None]
  - NECK PAIN [None]
  - PAIN [None]
